FAERS Safety Report 7346004-0 (Version None)
Quarter: 2011Q1

REPORT INFORMATION
  Report Type: 
  Country: None (occurrence: None)
  Receive Date: 20110307
  Receipt Date: 20110307
  Transmission Date: 20110831
  Serious: Yes (Other)
  Sender: FDA-Public Use
  Company Number: None

PATIENT
  Age: 94 Year
  Sex: Female
  Weight: 60.3284 kg

DRUGS (1)
  1. HYDROCODONE BITARTRATE + ACETAMINOPHEN [Suspect]
     Indication: ARTHRITIS
     Dosage: 5MG/500MG BID PO
     Route: 048
     Dates: start: 19850101, end: 20110301

REACTIONS (1)
  - DRUG INEFFECTIVE [None]
